FAERS Safety Report 9140133 (Version 3)
Quarter: 2016Q2

REPORT INFORMATION
  Report Type: Report from Study
  Country: JP (occurrence: JP)
  Receive Date: 20130305
  Receipt Date: 20160622
  Transmission Date: 20160815
  Serious: Yes (Hospitalization, Other)
  Sender: FDA-Public Use
  Company Number: JP-ASTELLAS-2011JP008776

PATIENT
  Age: 42 Year
  Sex: Female
  Weight: 62 kg

DRUGS (44)
  1. NU-LOTAN [Concomitant]
     Active Substance: LOSARTAN POTASSIUM
     Indication: PRODUCT USED FOR UNKNOWN INDICATION
     Route: 048
  2. MOHRUS [Concomitant]
     Active Substance: KETOPROFEN
     Indication: PRODUCT USED FOR UNKNOWN INDICATION
     Dosage: UNK UNK, UNKNOWN FREQ.
     Route: 061
     Dates: start: 20081205, end: 20090305
  3. ISODINE [Concomitant]
     Active Substance: POVIDONE-IODINE
     Indication: PROPHYLAXIS
     Dosage: UNK UNK, UNKNOWN FREQ.
     Route: 061
     Dates: start: 20090403, end: 20100817
  4. GEBEN [Concomitant]
     Active Substance: SILVER SULFADIAZINE
     Indication: SKIN ULCER
     Dosage: UNK UNK, UNKNOWN FREQ.
     Route: 061
  5. BREDININ [Concomitant]
     Active Substance: MIZORIBINE
     Indication: LUPUS NEPHRITIS
     Dosage: UNK UNK, UNKNOWN FREQ.
     Route: 065
     Dates: start: 20120217
  6. SOLU-MEDROL [Concomitant]
     Active Substance: METHYLPREDNISOLONE SODIUM SUCCINATE
     Indication: ACUTE DISSEMINATED ENCEPHALOMYELITIS
     Route: 065
  7. VANCOMYCIN [Concomitant]
     Active Substance: VANCOMYCIN
     Indication: ACUTE DISSEMINATED ENCEPHALOMYELITIS
     Dosage: UNK UNK, UNKNOWN FREQ.
     Route: 065
  8. TACROLIMUS. [Suspect]
     Active Substance: TACROLIMUS
     Indication: LUPUS NEPHRITIS
     Route: 048
     Dates: start: 20080215, end: 20080306
  9. TACROLIMUS. [Suspect]
     Active Substance: TACROLIMUS
     Route: 048
     Dates: start: 20080307, end: 20080731
  10. TACROLIMUS. [Suspect]
     Active Substance: TACROLIMUS
     Route: 048
     Dates: start: 20111216, end: 20111222
  11. PREDNISOLONE. [Concomitant]
     Active Substance: PREDNISOLONE
     Route: 048
     Dates: start: 20081205, end: 20111222
  12. BONALON [Concomitant]
     Active Substance: ALENDRONATE SODIUM
     Indication: PROPHYLAXIS
     Route: 048
  13. LOXONIN [Concomitant]
     Active Substance: LOXOPROFEN SODIUM
     Dosage: UNK UNK, UNKNOWN FREQ.
     Route: 048
  14. SALICYLIC ACID. [Concomitant]
     Active Substance: SALICYLIC ACID
     Indication: PRODUCT USED FOR UNKNOWN INDICATION
     Dosage: UNK UNK, UNKNOWN FREQ.
     Route: 061
     Dates: start: 20081205, end: 20090305
  15. SALICYLIC ACID. [Concomitant]
     Active Substance: SALICYLIC ACID
     Dosage: UNK UNK, UNKNOWN FREQ.
     Route: 061
     Dates: start: 20091118, end: 20100817
  16. ALFAROL [Concomitant]
     Active Substance: ALFACALCIDOL
     Indication: PROPHYLAXIS
     Dosage: 0.25 ?G, ONCE DAILY
     Route: 048
     Dates: start: 20100820
  17. VALTREX [Concomitant]
     Active Substance: VALACYCLOVIR HYDROCHLORIDE
     Indication: HERPES ZOSTER
     Dosage: UNK UNK, UNKNOWN FREQ.
     Route: 048
  18. ARASENA A [Concomitant]
     Active Substance: VIDARABINE
     Indication: HERPES ZOSTER
     Dosage: UNK UNK, UNKNOWN FREQ.
     Route: 061
  19. AMPICILLIN [Concomitant]
     Active Substance: AMPICILLIN
     Indication: ACUTE DISSEMINATED ENCEPHALOMYELITIS
     Dosage: UNK UNK, UNKNOWN FREQ.
     Route: 065
  20. PREDNISOLONE. [Concomitant]
     Active Substance: PREDNISOLONE
     Route: 048
     Dates: start: 20111229, end: 20120216
  21. WARFARIN [Concomitant]
     Active Substance: WARFARIN
     Indication: PRODUCT USED FOR UNKNOWN INDICATION
     Route: 048
  22. POSTERISAN                         /00028601/ [Concomitant]
     Indication: MIXED CONNECTIVE TISSUE DISEASE
     Route: 061
     Dates: start: 20111028, end: 20111124
  23. CRAVIT [Concomitant]
     Active Substance: LEVOFLOXACIN
     Indication: URINARY TRACT INFECTION
     Route: 048
     Dates: start: 20100814, end: 20100816
  24. CADEX                              /00082201/ [Concomitant]
     Indication: SKIN ULCER
     Dosage: UNK UNK, UNKNOWN FREQ.
     Route: 061
  25. TACROLIMUS. [Suspect]
     Active Substance: TACROLIMUS
     Route: 048
     Dates: start: 20111028, end: 20111215
  26. PREDNISOLONE. [Concomitant]
     Active Substance: PREDNISOLONE
     Route: 048
     Dates: start: 20080829, end: 20081204
  27. ACICLOVIN [Concomitant]
     Active Substance: ACYCLOVIR
     Indication: ACUTE DISSEMINATED ENCEPHALOMYELITIS
     Dosage: UNK UNK, UNKNOWN FREQ.
     Route: 065
  28. PANSPORIN T [Concomitant]
     Indication: SKIN ULCER
     Dosage: UNK UNK, UNKNOWN FREQ.
     Route: 048
  29. TACROLIMUS. [Suspect]
     Active Substance: TACROLIMUS
     Route: 048
     Dates: start: 20080801, end: 20080828
  30. TACROLIMUS. [Suspect]
     Active Substance: TACROLIMUS
     Route: 048
     Dates: start: 20080829, end: 20110818
  31. PREDNISOLONE. [Concomitant]
     Active Substance: PREDNISOLONE
     Dosage: UNK UNK, UNKNOWN FREQ.
     Route: 048
  32. PL GRAN. [Concomitant]
     Active Substance: UNSPECIFIED INGREDIENT
     Indication: MIXED CONNECTIVE TISSUE DISEASE
     Route: 048
     Dates: start: 20111028, end: 20111103
  33. ACTOSIN                            /01277502/ [Concomitant]
     Indication: SKIN ULCER
     Dosage: UNK UNK, UNKNOWN FREQ.
     Route: 061
  34. NERISONA [Concomitant]
     Active Substance: DIFLUCORTOLONE VALERATE
     Indication: SKIN ULCER
     Dosage: UNK UNK, UNKNOWN FREQ.
     Route: 061
  35. TACROLIMUS. [Suspect]
     Active Substance: TACROLIMUS
     Route: 048
     Dates: start: 20110819, end: 20111027
  36. PURSENNID [Concomitant]
     Active Substance: SENNOSIDES A AND B
     Indication: PROPHYLAXIS
     Route: 048
  37. CEFTRIAXONE SODIUM. [Concomitant]
     Active Substance: CEFTRIAXONE SODIUM
     Indication: ACUTE DISSEMINATED ENCEPHALOMYELITIS
     Dosage: UNK UNK, UNKNOWN FREQ.
     Route: 065
  38. PREDNISOLONE. [Concomitant]
     Active Substance: PREDNISOLONE
     Indication: LUPUS NEPHRITIS
     Route: 048
     Dates: end: 20080828
  39. PREDNISOLONE. [Concomitant]
     Active Substance: PREDNISOLONE
     Route: 048
     Dates: start: 20121110
  40. GASTER [Concomitant]
     Active Substance: FAMOTIDINE
     Indication: PROPHYLAXIS
     Route: 048
  41. LOXONIN [Concomitant]
     Active Substance: LOXOPROFEN SODIUM
     Indication: SKIN ULCER
     Dosage: UNK UNK, UNKNOWN FREQ.
     Route: 048
     Dates: start: 20081205, end: 20090512
  42. ISODINE [Concomitant]
     Active Substance: POVIDONE-IODINE
     Dosage: UNK UNK, UNKNOWN FREQ.
     Route: 061
     Dates: start: 20111028
  43. PROPETO [Concomitant]
     Indication: SKIN ULCER
     Dosage: UNK UNK, UNKNOWN FREQ.
     Route: 061
  44. SOLU-MEDROL [Concomitant]
     Active Substance: METHYLPREDNISOLONE SODIUM SUCCINATE
     Indication: MIXED CONNECTIVE TISSUE DISEASE
     Route: 065
     Dates: start: 20111226, end: 20111228

REACTIONS (5)
  - Acute disseminated encephalomyelitis [Recovering/Resolving]
  - Skin ulcer [Recovered/Resolved]
  - Urinary tract infection [Recovered/Resolved]
  - Mixed connective tissue disease [Recovering/Resolving]
  - Herpes zoster [Recovering/Resolving]

NARRATIVE: CASE EVENT DATE: 20100811
